FAERS Safety Report 8115680-7 (Version None)
Quarter: 2012Q1

REPORT INFORMATION
  Report Type: 
  Country: None (occurrence: None)
  Receive Date: 20120206
  Receipt Date: 20120124
  Transmission Date: 20120608
  Serious: Yes (Other)
  Sender: FDA-Public Use
  Company Number: US-UCBSA-050214

PATIENT
  Age: 46 Year
  Sex: Male
  Weight: 86.2 kg

DRUGS (4)
  1. VIMPAT [Suspect]
     Route: 048
     Dates: start: 20120112, end: 20120101
  2. VIMPAT [Suspect]
     Route: 048
     Dates: start: 20110101
  3. LAMICTAL [Concomitant]
     Indication: CONVULSION
     Route: 048
  4. VIMPAT [Suspect]
     Indication: CONVULSION
     Route: 048
     Dates: start: 20120114

REACTIONS (5)
  - CONVULSION [None]
  - SCRATCH [None]
  - FALL [None]
  - JOINT INJURY [None]
  - EPILEPTIC AURA [None]
